FAERS Safety Report 6620975-X (Version None)
Quarter: 2010Q1

REPORT INFORMATION
  Report Type: 
  Country: None (occurrence: None)
  Receive Date: 20100309
  Receipt Date: 20100224
  Transmission Date: 20100710
  Serious: Yes (Other)
  Sender: FDA-Public Use
  Company Number: PHHY2010IT09182

PATIENT
  Sex: Male

DRUGS (11)
  1. ZOMETA [Suspect]
     Indication: PROSTATE CANCER
     Dosage: 4 MG, QMO (4 MG + 5 ML)
     Route: 042
  2. FLUTAMIDE [Concomitant]
  3. MONOCINQUE [Concomitant]
  4. ASPIRIN [Concomitant]
  5. LASIX [Concomitant]
  6. NORVASC [Concomitant]
  7. NITRODERM [Concomitant]
  8. PRAVASELECT [Concomitant]
  9. DELTACORTENE [Concomitant]
  10. PRADIF [Concomitant]
  11. LANSOPRAZOLE [Concomitant]

REACTIONS (1)
  - OSTEONECROSIS [None]
